FAERS Safety Report 4288837-3 (Version None)
Quarter: 2004Q1

REPORT INFORMATION
  Report Type: 
  Country: None (occurrence: None)
  Receive Date: 20040209
  Receipt Date: 20040129
  Transmission Date: 20041129
  Serious: Yes (Hospitalization)
  Sender: FDA-Public Use
  Company Number: PHNR2004AU00569

PATIENT
  Age: 44 Year
  Sex: Female

DRUGS (3)
  1. VOLTAREN [Suspect]
     Indication: ARTHRALGIA
     Dates: start: 20000101, end: 20000227
  2. KARVEA [Suspect]
     Indication: ESSENTIAL HYPERTENSION
     Dates: start: 19970101, end: 20000227
  3. RASTINON [Concomitant]
     Dates: start: 19970101, end: 20000227

REACTIONS (9)
  - CHOLESTASIS [None]
  - COAGULOPATHY [None]
  - DIARRHOEA [None]
  - ENCEPHALOPATHY [None]
  - HEPATIC FAILURE [None]
  - HEPATIC NECROSIS [None]
  - JAUNDICE [None]
  - NAUSEA [None]
  - VOMITING [None]
